FAERS Safety Report 10677816 (Version 2)
Quarter: 2014Q4

REPORT INFORMATION
  Report Type: Report from Study
  Country: IT (occurrence: IT)
  Receive Date: 20141229
  Receipt Date: 20141229
  Transmission Date: 20150529
  Serious: Yes (Other)
  Sender: FDA-Public Use
  Company Number: IT-ROCHE-1508165

PATIENT

DRUGS (2)
  1. RITUXIMAB [Suspect]
     Active Substance: RITUXIMAB
     Indication: DIFFUSE LARGE B-CELL LYMPHOMA RECURRENT
     Route: 042
  2. BENDAMUSTINE [Suspect]
     Active Substance: BENDAMUSTINE
     Indication: DIFFUSE LARGE B-CELL LYMPHOMA RECURRENT
     Dosage: AT A DOSE BETWEEN 70 AND 120 MG/M2 (MEAN 90 MG/M2) ON DAYS 1 AND 2 OF EACH 28-DAY CYCLE FOR UP TO SI
     Route: 065

REACTIONS (11)
  - Neutropenia [Unknown]
  - Nausea [Unknown]
  - Cytomegalovirus infection [Unknown]
  - Rash [Unknown]
  - Diarrhoea [Unknown]
  - Anaemia [Unknown]
  - Fatigue [Unknown]
  - Lymphopenia [Unknown]
  - Pyrexia [Unknown]
  - Myelodysplastic syndrome [Unknown]
  - Thrombocytopenia [Unknown]
